FAERS Safety Report 7257553-8 (Version None)
Quarter: 2011Q1

REPORT INFORMATION
  Report Type: 
  Country: None (occurrence: None)
  Receive Date: 20110129
  Receipt Date: 20100609
  Transmission Date: 20110831
  Serious: Yes (Other)
  Sender: FDA-Public Use
  Company Number: US-ABBOTT-10P-163-0649133-00

PATIENT
  Sex: Female

DRUGS (1)
  1. HUMIRA [Suspect]
     Dosage: OFF FOR 4 MONTHS DUE TO SURGERY

REACTIONS (4)
  - SURGERY [None]
  - INJECTION SITE URTICARIA [None]
  - DEVICE MALFUNCTION [None]
  - INJECTION SITE PAIN [None]
